FAERS Safety Report 10165478 (Version 1)
Quarter: 2014Q2

REPORT INFORMATION
  Report Type: Spontaneous
  Country: US (occurrence: US)
  Receive Date: 20140510
  Receipt Date: 20140510
  Transmission Date: 20141212
  Serious: No
  Sender: FDA-Public Use
  Company Number: US-BRISTOL-MYERS SQUIBB COMPANY-20504171

PATIENT
  Age: 54 Year
  Sex: Male
  Weight: 108.84 kg

DRUGS (3)
  1. BYDUREON [Suspect]
     Indication: TYPE 2 DIABETES MELLITUS
     Dosage: 3RD INJ 11MAR2014
     Dates: start: 20140225
  2. METFORMIN HCL [Suspect]
  3. GLIPIZIDE [Suspect]

REACTIONS (1)
  - Blood glucose increased [Unknown]
